FAERS Safety Report 5920827-4 (Version None)
Quarter: 2008Q4

REPORT INFORMATION
  Report Type: 
  Country: None (occurrence: None)
  Receive Date: 20081016
  Receipt Date: 20081007
  Transmission Date: 20090506
  Serious: Yes (Hospitalization)
  Sender: FDA-Public Use
  Company Number: US-MERCK-0810USA01186

PATIENT
  Age: 75 Year
  Sex: Male

DRUGS (3)
  1. HYZAAR [Suspect]
     Route: 048
  2. COZAAR [Suspect]
     Route: 048
  3. [THERAPY UNSPECIFIED] [Concomitant]
     Route: 065

REACTIONS (2)
  - DEHYDRATION [None]
  - UNRESPONSIVE TO STIMULI [None]
